FAERS Safety Report 4645042-6 (Version None)
Quarter: 2005Q2

REPORT INFORMATION
  Report Type: 
  Country: None (occurrence: None)
  Receive Date: 20050426
  Receipt Date: 20050331
  Transmission Date: 20051028
  Serious: Yes (Other)
  Sender: FDA-Public Use
  Company Number: JP-ROCHE-401776

PATIENT
  Age: 54 Year
  Sex: Female

DRUGS (2)
  1. TAMIFLU [Suspect]
     Route: 048
     Dates: start: 20050327, end: 20050327
  2. TAMIFLU [Suspect]
     Route: 048
     Dates: start: 20050328, end: 20050329

REACTIONS (2)
  - CHEST DISCOMFORT [None]
  - SUPRAVENTRICULAR TACHYCARDIA [None]
